FAERS Safety Report 7499987-2 (Version None)
Quarter: 2011Q2

REPORT INFORMATION
  Report Type: 
  Country: None (occurrence: None)
  Receive Date: 20110524
  Receipt Date: 20110518
  Transmission Date: 20111010
  Serious: Yes (Hospitalization)
  Sender: FDA-Public Use
  Company Number: US-B.I. PHARMACEUTICALS,INC./RIDGEFIELD-2011-BP-13445BP

PATIENT
  Age: 76 Year
  Sex: Female

DRUGS (3)
  1. LOVENOX [Concomitant]
  2. PRADAXA [Suspect]
  3. ASPIRIN [Concomitant]
     Dosage: 81 MG
     Dates: end: 20110512

REACTIONS (1)
  - COMPARTMENT SYNDROME [None]
